FAERS Safety Report 7860920-2 (Version None)
Quarter: 2011Q4

REPORT INFORMATION
  Report Type: 
  Country: None (occurrence: None)
  Receive Date: 20111027
  Receipt Date: 20111021
  Transmission Date: 20120403
  Serious: Yes (Hospitalization)
  Sender: FDA-Public Use
  Company Number: AU-MERCK-1110USA03507

PATIENT
  Age: 39 Year
  Sex: Female

DRUGS (2)
  1. DECADRON [Suspect]
     Route: 048
  2. DECADRON [Suspect]
     Indication: METASTASES TO CENTRAL NERVOUS SYSTEM
     Route: 048

REACTIONS (2)
  - LUNG ABSCESS [None]
  - PNEUMONIA LEGIONELLA [None]
